FAERS Safety Report 5710155-4 (Version None)
Quarter: 2008Q2

REPORT INFORMATION
  Report Type: 
  Country: None (occurrence: None)
  Receive Date: 20080418
  Receipt Date: 20080206
  Transmission Date: 20081010
  Serious: No
  Sender: FDA-Public Use
  Company Number: US-ASTRAZENECA-2008UW02523

PATIENT
  Age: 82 Year
  Sex: Female

DRUGS (2)
  1. METOPROLOL SUCCINATE [Suspect]
     Indication: HEART RATE IRREGULAR
     Route: 048
     Dates: start: 20071101
  2. METOPROLOL SUCCINATE [Suspect]
     Route: 048

REACTIONS (3)
  - DIZZINESS [None]
  - DYSPHONIA [None]
  - DYSPNOEA [None]
